FAERS Safety Report 7329370-1 (Version None)
Quarter: 2011Q1

REPORT INFORMATION
  Report Type: 
  Country: None (occurrence: None)
  Receive Date: 20110303
  Receipt Date: 20110222
  Transmission Date: 20110831
  Serious: Yes (Hospitalization)
  Sender: FDA-Public Use
  Company Number: US-SANOFI-AVENTIS-2011SA012325

PATIENT
  Sex: Male

DRUGS (2)
  1. JEVTANA KIT [Suspect]
     Route: 041
  2. ANALGESICS [Concomitant]
     Indication: PAIN

REACTIONS (1)
  - NEPHROLITHIASIS [None]
